FAERS Safety Report 15334871 (Version 1)
Quarter: 2018Q3

REPORT INFORMATION
  Report Type: Spontaneous
  Country: US (occurrence: US)
  Receive Date: 20180827
  Receipt Date: 20180827
  Transmission Date: 20181010
  Serious: No
  Sender: FDA-Public Use
  Company Number: None

PATIENT
  Age: 33 Year
  Sex: Female

DRUGS (1)
  1. HUMIRA [Suspect]
     Active Substance: ADALIMUMAB
     Indication: GUTTATE PSORIASIS
     Dosage: ?          OTHER DOSE:80MG DAY 1, 40MG D;OTHER FREQUENCY:STARTER DOSE;?
     Route: 058
     Dates: start: 20180720

REACTIONS (4)
  - Immunosuppression [None]
  - Pain [None]
  - Contusion [None]
  - Dry skin [None]

NARRATIVE: CASE EVENT DATE: 20180820
